FAERS Safety Report 4966938-1 (Version None)
Quarter: 2006Q2

REPORT INFORMATION
  Report Type: 
  Country: None (occurrence: None)
  Receive Date: 20060407
  Receipt Date: 20060328
  Transmission Date: 20061013
  Serious: Yes (Disabling)
  Sender: FDA-Public Use
  Company Number: US-MERCK-0603USA04354

PATIENT
  Age: 75 Year
  Sex: Male

DRUGS (4)
  1. ZOCOR [Suspect]
     Indication: BLOOD CHOLESTEROL INCREASED
     Route: 048
  2. ZOCOR [Suspect]
     Route: 048
  3. ACTOS [Concomitant]
     Route: 065
  4. GLUCOPHAGE [Concomitant]
     Route: 065

REACTIONS (1)
  - MUSCLE SPASMS [None]
